FAERS Safety Report 4842235-X (Version None)
Quarter: 2005Q4

REPORT INFORMATION
  Report Type: 
  Country: None (occurrence: None)
  Receive Date: 20051125
  Receipt Date: 20051115
  Transmission Date: 20060501
  Serious: Yes (Hospitalization, Other)
  Sender: FDA-Public Use
  Company Number: 2005156889

PATIENT
  Age: 44 Year
  Sex: Male
  Weight: 98.4306 kg

DRUGS (5)
  1. VIAGRA [Suspect]
     Indication: ERECTILE DYSFUNCTION
     Dosage: (100 MG)
  2. ENALAPRIL MALEATE [Suspect]
     Indication: HYPERTENSION
     Dosage: (2.5 MG)
     Dates: start: 20050101
  3. ZOCOR [Concomitant]
  4. VITAMINS (VITAMINS) [Concomitant]
  5. SAW PALMETTO (SAW PALMETTO) [Concomitant]

REACTIONS (13)
  - BILIARY TRACT DISORDER [None]
  - DRUG EFFECT DECREASED [None]
  - DRUG INTERACTION [None]
  - ERECTILE DYSFUNCTION [None]
  - GALLBLADDER OPERATION [None]
  - HEADACHE [None]
  - HYPERPLASTIC CHOLECYSTOPATHY [None]
  - HYPERTENSION [None]
  - NASAL CONGESTION [None]
  - NAUSEA [None]
  - PHARMACEUTICAL PRODUCT COMPLAINT [None]
  - PHOTOSENSITIVITY REACTION [None]
  - SUBDURAL HAEMATOMA [None]
